FAERS Safety Report 5123408-8 (Version None)
Quarter: 2006Q4

REPORT INFORMATION
  Report Type: 
  Country: None (occurrence: None)
  Receive Date: 20061004
  Receipt Date: 20060922
  Transmission Date: 20070319
  Serious: Yes (Other)
  Sender: FDA-Public Use
  Company Number: HQWYE050222SEP06

PATIENT
  Age: 77 Year
  Sex: Female

DRUGS (5)
  1. PANTOPRAZOLE SODIUM [Suspect]
     Dosage: 20 MG 1X PER 1 DAY ORAL
     Route: 048
     Dates: start: 20060904
  2. ASPIRIN [Suspect]
     Indication: PAIN
     Dosage: SEE IMAGE
     Route: 048
     Dates: start: 19990715, end: 20060418
  3. ASPIRIN [Suspect]
     Indication: PAIN
     Dosage: SEE IMAGE
     Route: 048
     Dates: start: 20060419, end: 20060903
  4. MOVICOX (MELOXICAM, ) [Suspect]
     Indication: PAIN
     Dosage: 15 MG 1X PER 1 DAY ORAL
     Route: 048
     Dates: start: 20060904, end: 20060905
  5. TEMAZEPAM [Concomitant]

REACTIONS (1)
  - HAEMATOMA [None]
